FAERS Safety Report 8418654-1 (Version None)
Quarter: 2012Q2

REPORT INFORMATION
  Report Type: 
  Country: None (occurrence: None)
  Receive Date: 20120607
  Receipt Date: 20120530
  Transmission Date: 20120825
  Serious: Yes (Other)
  Sender: FDA-Public Use
  Company Number: ES-ELI_LILLY_AND_COMPANY-ES201205010149

PATIENT
  Sex: Female

DRUGS (1)
  1. FORTEO [Suspect]

REACTIONS (6)
  - FEELING ABNORMAL [None]
  - DRUG DOSE OMISSION [None]
  - NEOPLASM MALIGNANT [None]
  - NAUSEA [None]
  - URTICARIA [None]
  - VOMITING [None]
